FAERS Safety Report 8759963 (Version 1)
Quarter: 2012Q4

REPORT INFORMATION
  Report Type: 
  Country: DE (occurrence: DE)
  Receive Date: 20120829
  Receipt Date: 20120829
  Transmission Date: 20130627
  Serious: Yes (Life-Threatening, Hospitalization)
  Sender: FDA-Public Use
  Company Number: DE-GLAXOSMITHKLINE-D0076306A

PATIENT
  Age: 69 Year
  Sex: Female
  Weight: 58 kg

DRUGS (9)
  1. ARIXTRA [Suspect]
     Indication: THROMBOSIS PROPHYLAXIS
     Dosage: 2.5MG Per day
     Route: 065
     Dates: start: 20120620
  2. DICLOFENAC [Concomitant]
     Dosage: 50MG Three times per day
     Route: 065
     Dates: start: 20120620
  3. PANTOPRAZOL [Concomitant]
     Dosage: 20MG Per day
     Route: 065
     Dates: start: 20120620
  4. TRAMAL LONG [Concomitant]
     Dosage: 100MG Twice per day
     Route: 065
     Dates: start: 20120620
  5. NOVALGIN [Concomitant]
     Dosage: 20DROP Four times per day
     Route: 065
     Dates: start: 20120620
  6. CALCILAC [Concomitant]
     Dosage: 180MG Twice per day
     Route: 065
  7. OPIPRAMOL [Concomitant]
     Route: 065
  8. OXYCODON [Concomitant]
     Dosage: 5MG per day
     Route: 065
     Dates: start: 20120621
  9. BROMAZANIL [Concomitant]
     Dosage: 6MG per day
     Route: 065
     Dates: start: 20120624

REACTIONS (1)
  - Pulmonary embolism [Unknown]
